FAERS Safety Report 8942788 (Version 1)
Quarter: 2012Q4

REPORT INFORMATION
  Report Type: Spontaneous
  Country: US (occurrence: None)
  Receive Date: 20121204
  Receipt Date: 20121204
  Transmission Date: 20130627
  Serious: Yes (Death, Other)
  Sender: FDA-Public Use
  Company Number: None

PATIENT
  Age: 67 Year
  Sex: Male
  Weight: 139.71 kg

DRUGS (3)
  1. DEXTROSE [Suspect]
     Dates: start: 20120722, end: 20120722
  2. BACITRACIN [Suspect]
     Dates: start: 20120724, end: 20120724
  3. HEPARIN [Concomitant]

REACTIONS (10)
  - Product quality issue [None]
  - Feeling cold [None]
  - Pyrexia [None]
  - Decreased appetite [None]
  - Cough [None]
  - Vomiting [None]
  - Neck pain [None]
  - Restlessness [None]
  - Insomnia [None]
  - Feeling abnormal [None]
